FAERS Safety Report 4599970-0 (Version None)
Quarter: 2005Q1

REPORT INFORMATION
  Report Type: 
  Country: None (occurrence: None)
  Receive Date: 20050304
  Receipt Date: 20050304
  Transmission Date: 20050727
  Serious: Yes (Other)
  Sender: FDA-Public Use
  Company Number: None

PATIENT
  Age: 52 Year
  Sex: Female
  Weight: 58.9676 kg

DRUGS (3)
  1. CEFTIN [Suspect]
     Indication: LOWER RESPIRATORY TRACT INFECTION
     Dosage: 500 MG, 2XS ORAL
     Route: 048
     Dates: start: 20050301, end: 20050302
  2. CEFTIN [Suspect]
     Indication: PHARYNGITIS
     Dosage: 500 MG, 2XS ORAL
     Route: 048
     Dates: start: 20050301, end: 20050302
  3. CEFTIN [Suspect]
     Indication: SINUSITIS
     Dosage: 500 MG, 2XS ORAL
     Route: 048
     Dates: start: 20050301, end: 20050302

REACTIONS (3)
  - GLOSSODYNIA [None]
  - HEART RATE INCREASED [None]
  - HYPERHIDROSIS [None]
